FAERS Safety Report 7465920-2 (Version None)
Quarter: 2011Q2

REPORT INFORMATION
  Report Type: 
  Country: None (occurrence: None)
  Receive Date: 20110509
  Receipt Date: 20100429
  Transmission Date: 20111010
  Serious: No
  Sender: FDA-Public Use
  Company Number: US-ALEXION-A201000505

PATIENT

DRUGS (8)
  1. IRON [Concomitant]
  2. VITAMIN B12                        /00056201/ [Concomitant]
     Dosage: UNK
     Route: 048
  3. SOLIRIS [Suspect]
     Dosage: 900 MG, Q2WKS
     Route: 042
     Dates: start: 20080402
  4. BENAZEPRIL HYDROCHLORIDE [Concomitant]
     Indication: HYPERTENSION
     Dosage: 20 MG, QD
     Route: 048
  5. SOLIRIS [Suspect]
     Indication: PAROXYSMAL NOCTURNAL HAEMOGLOBINURIA
     Dosage: 600 MG, QWK
     Route: 042
     Dates: start: 20080305, end: 20080326
  6. ASPIRIN [Concomitant]
     Dosage: 81 MG, QD
     Route: 048
  7. POTASSIUM [Concomitant]
     Dosage: UNK
     Route: 048
  8. FOLIC ACID [Concomitant]
     Dosage: UNK
     Route: 048

REACTIONS (1)
  - HEADACHE [None]
